FAERS Safety Report 10575966 (Version 4)
Quarter: 2015Q3

REPORT INFORMATION
  Report Type: Spontaneous
  Country: US (occurrence: US)
  Receive Date: 20141111
  Receipt Date: 20150708
  Transmission Date: 20151125
  Serious: Yes (Death, Hospitalization)
  Sender: FDA-Public Use
  Company Number: US-PFIZER INC-2014280150

PATIENT
  Age: 87 Year
  Sex: Female

DRUGS (1)
  1. SUTENT [Suspect]
     Active Substance: SUNITINIB MALATE
     Indication: METASTATIC RENAL CELL CARCINOMA
     Dosage: 37.5 MG, DAILY (ONE 12.5 MG CAP + ONE 25 MG CAP)
     Dates: start: 2014

REACTIONS (4)
  - Diarrhoea [Unknown]
  - Death [Fatal]
  - Vomiting [Unknown]
  - Aphasia [Unknown]

NARRATIVE: CASE EVENT DATE: 2014
